FAERS Safety Report 7291664-6 (Version None)
Quarter: 2011Q1

REPORT INFORMATION
  Report Type: 
  Country: None (occurrence: None)
  Receive Date: 20110210
  Receipt Date: 20110210
  Transmission Date: 20110831
  Serious: Yes (Life-Threatening, Hospitalization)
  Sender: FDA-Public Use
  Company Number: None

PATIENT
  Age: 23 Year
  Sex: Female
  Weight: 79.3795 kg

DRUGS (4)
  1. WELLBUTRIN [Concomitant]
  2. SPIRONOLACTONE [Concomitant]
  3. EFFEXOR XR [Concomitant]
  4. YAZ [Suspect]
     Indication: CONTRACEPTION
     Dosage: 3 MG/ .02 MG ONCE A DAY PO
     Route: 048
     Dates: start: 20100814, end: 20110207

REACTIONS (1)
  - PULMONARY THROMBOSIS [None]
